FAERS Safety Report 5989765-5 (Version None)
Quarter: 2008Q4

REPORT INFORMATION
  Report Type: 
  Country: None (occurrence: None)
  Receive Date: 20081209
  Receipt Date: 20081127
  Transmission Date: 20090506
  Serious: Yes (Other)
  Sender: FDA-Public Use
  Company Number: IPS_01335_2008

PATIENT
  Age: 64 Year
  Sex: Male

DRUGS (6)
  1. APO-GO (APO-GO PUMP - APOMORPHINE HYDROCHLORIDE) (NOT SPECIFIED) [Suspect]
     Indication: PARKINSON'S DISEASE
     Dosage: 50 MG/5 ML, FOR UNKNOWN SUBCUTANEOUS
     Route: 058
  2. APO-GO (APO-GO PUMP - APOMORPHINE HYDROCHLORIDE) (NOT SPECIFIED) [Suspect]
     Indication: PARKINSON'S DISEASE
     Dosage: 50 MG/5 ML, FOR UNKNOWN SUBCUTANEOUS
     Route: 058
  3. MADOPAR /00349201/ [Concomitant]
  4. DETRUSITOL /013502002/ [Concomitant]
  5. FEXOFENADINE [Concomitant]
  6. TEMAZEPAM [Concomitant]

REACTIONS (5)
  - HYPOTENSION [None]
  - JOINT SWELLING [None]
  - RASH ERYTHEMATOUS [None]
  - RASH GENERALISED [None]
  - RASH PRURITIC [None]
